FAERS Safety Report 10689615 (Version 1)
Quarter: 2015Q1

REPORT INFORMATION
  Report Type: Spontaneous
  Country: US (occurrence: None)
  Receive Date: 20150102
  Receipt Date: 20150102
  Transmission Date: 20150720
  Serious: Yes (Hospitalization)
  Sender: FDA-Public Use
  Company Number: None

PATIENT
  Age: 45 Year
  Sex: Male
  Weight: 74.7 kg

DRUGS (1)
  1. FILGRASTIM [Suspect]
     Active Substance: FILGRASTIM
     Indication: NEUTROPENIA
     Dosage: UD, SQ
     Route: 058
     Dates: start: 20140730, end: 20140808

REACTIONS (3)
  - Pruritus [None]
  - Swelling face [None]
  - Local swelling [None]

NARRATIVE: CASE EVENT DATE: 20140808
